FAERS Safety Report 16085491 (Version 2)
Quarter: 2019Q1

REPORT INFORMATION
  Report Type: Spontaneous
  Country: CH (occurrence: CH)
  Receive Date: 20190318
  Receipt Date: 20190327
  Transmission Date: 20190418
  Serious: Yes (Hospitalization, Other)
  Sender: FDA-Public Use
  Company Number: CH-PFIZER INC-2019109068

PATIENT
  Age: 75 Year
  Sex: Female

DRUGS (5)
  1. ARICEPT [Interacting]
     Active Substance: DONEPEZIL HYDROCHLORIDE
     Dosage: UNK
  2. SYMFONA (GINKGO BILOBA) [Interacting]
     Active Substance: GINKGO
     Dosage: 1 DF, 1X/DAY
     Route: 048
     Dates: end: 20190121
  3. LODINE [Interacting]
     Active Substance: ETODOLAC
     Dosage: 300 MG, 1X/DAY
     Route: 048
  4. SIMCORA [Suspect]
     Active Substance: SIMVASTATIN
     Dosage: UNK
  5. ZOLOFT [Suspect]
     Active Substance: SERTRALINE HYDROCHLORIDE
     Dosage: 50 MG, 1X/DAY
     Route: 048

REACTIONS (4)
  - Drug interaction [Recovered/Resolved]
  - Haemoptysis [Recovered/Resolved]
  - Pulmonary alveolar haemorrhage [Recovered/Resolved]
  - Overdose [Unknown]

NARRATIVE: CASE EVENT DATE: 20190121
